FAERS Safety Report 4510941-2 (Version None)
Quarter: 2004Q4

REPORT INFORMATION
  Report Type: 
  Country: None (occurrence: None)
  Receive Date: 20040928
  Receipt Date: 20040608
  Transmission Date: 20050328
  Serious: No
  Sender: FDA-Public Use
  Company Number: 04P-163-0263332-00

PATIENT
  Age: 66 Year
  Sex: Female
  Weight: 56.6996 kg

DRUGS (11)
  1. HUMIRA [Suspect]
     Indication: RHEUMATOID ARTHRITIS
     Dosage: 40 MG, 1 IN 2 WK, SUBCUTANEOUS
     Route: 058
     Dates: start: 20040312
  2. PREDNISONE [Concomitant]
  3. LEFLUNOMIDE [Concomitant]
  4. FOLIC ACID [Concomitant]
  5. METHOTREXATE [Concomitant]
  6. SUCRALFATE [Concomitant]
  7. CYANOCOBALAMIN [Concomitant]
  8. TOCOPHEROL CONCENTRATE CAP [Concomitant]
  9. ASCORBIC ACID [Concomitant]
  10. MULTI-VITAMINS [Concomitant]
  11. CALCIUM CARBONATE [Concomitant]

REACTIONS (1)
  - INJECTION SITE ERYTHEMA [None]
